FAERS Safety Report 8852021 (Version 1)
Quarter: 2012Q4

REPORT INFORMATION
  Report Type: Spontaneous
  Country: DE (occurrence: None)
  Receive Date: 20121017
  Receipt Date: 20121017
  Transmission Date: 20130627
  Serious: Yes (Hospitalization)
  Sender: FDA-Public Use
  Company Number: IMP_06024_2012

PATIENT
  Age: 23 Year
  Sex: Female

DRUGS (1)
  1. MINOCYCLINE [Suspect]
     Indication: ROSACEA

REACTIONS (13)
  - Abdominal discomfort [None]
  - Infectious mononucleosis [None]
  - Eosinophilia [None]
  - Splenomegaly [None]
  - Cholestasis [None]
  - Pyrexia [None]
  - Malaise [None]
  - Abdominal pain [None]
  - Generalised oedema [None]
  - Rash maculo-papular [None]
  - Ascites [None]
  - Pleural effusion [None]
  - Respiratory failure [None]
